FAERS Safety Report 9365104 (Version 3)
Quarter: 2014Q2

REPORT INFORMATION
  Report Type: Spontaneous
  Country: US (occurrence: US)
  Receive Date: 20130624
  Receipt Date: 20140410
  Transmission Date: 20141212
  Serious: Yes (Hospitalization)
  Sender: FDA-Public Use
  Company Number: US-B.I. PHARMACEUTICALS,INC./RIDGEFIELD-2013-BI-17551BP

PATIENT
  Sex: Male
  Weight: 99.79 kg

DRUGS (4)
  1. PRADAXA [Suspect]
     Indication: ATRIAL FIBRILLATION
     Dosage: 300 MG
     Route: 048
     Dates: start: 20120409, end: 20121111
  2. LIPITOR [Concomitant]
     Dosage: 10 MG
     Route: 048
     Dates: start: 2002
  3. AMIODARONE [Concomitant]
     Dosage: 200 MG
     Route: 048
     Dates: start: 201208
  4. FLOMAX [Concomitant]
     Dosage: 0.4 MG
     Route: 048
     Dates: start: 2009

REACTIONS (3)
  - Cerebral haemorrhage [Unknown]
  - Subdural haematoma [Unknown]
  - Coagulopathy [Unknown]
